FAERS Safety Report 19012296 (Version 1)
Quarter: 2021Q1

REPORT INFORMATION
  Report Type: Report from Study
  Country: IN (occurrence: IN)
  Receive Date: 20210315
  Receipt Date: 20210315
  Transmission Date: 20210420
  Serious: Yes (Death, Hospitalization)
  Sender: FDA-Public Use
  Company Number: NVSC2021IN017275

PATIENT
  Age: 62 Year
  Sex: Female
  Weight: 65 kg

DRUGS (1)
  1. KRYXANA [Suspect]
     Active Substance: RIBOCICLIB
     Indication: BREAST CANCER METASTATIC
     Dosage: 600 MG, QD
     Route: 048
     Dates: start: 20210106, end: 20210222

REACTIONS (5)
  - Malignant neoplasm progression [Fatal]
  - Dyspnoea [Unknown]
  - Breast cancer metastatic [Fatal]
  - Intra-abdominal fluid collection [Fatal]
  - Cough [Unknown]

NARRATIVE: CASE EVENT DATE: 20210112
